FAERS Safety Report 5327756-8 (Version None)
Quarter: 2007Q2

REPORT INFORMATION
  Report Type: 
  Country: None (occurrence: None)
  Receive Date: 20070226
  Receipt Date: 20060502
  Transmission Date: 20071010
  Serious: Yes (Disabling, Other)
  Sender: FDA-Public Use
  Company Number: DSA_28161_2006

PATIENT
  Age: 69 Year
  Sex: Female
  Weight: 97.5234 kg

DRUGS (1)
  1. ENALAPRIL MALEATE [Suspect]
     Indication: HYPERTENSION
     Dosage: DF
     Dates: start: 20030101, end: 20030101

REACTIONS (1)
  - LOSS OF CONSCIOUSNESS [None]
